FAERS Safety Report 23988889 (Version 1)
Quarter: 2024Q2

REPORT INFORMATION
  Report Type: Spontaneous
  Country: ZA (occurrence: None)
  Receive Date: 20240619
  Receipt Date: 20240619
  Transmission Date: 20240716
  Serious: Yes (Hospitalization)
  Sender: FDA-Public Use
  Company Number: 2024A137243

PATIENT
  Age: 72 Year
  Sex: Female

DRUGS (5)
  1. BUDESONIDE\FORMOTEROL [Suspect]
     Active Substance: BUDESONIDE\FORMOTEROL
     Indication: Asthma
     Dosage: UNKNOWN DOSAGE AND FREQUENCY UNKNOWN
     Route: 055
  2. ESOMEPRAZOLE MAGNESIUM [Concomitant]
     Active Substance: ESOMEPRAZOLE MAGNESIUM
     Indication: Ulcer
  3. ALBUTEROL [Concomitant]
     Active Substance: ALBUTEROL
     Indication: Bronchospasm
  4. TAMOLTRA [Concomitant]
     Indication: Pain
  5. SEGAVIN [Concomitant]
     Indication: Coagulopathy

REACTIONS (3)
  - Pulmonary thrombosis [Unknown]
  - Cardiomegaly [Unknown]
  - Dizziness [Unknown]
